FAERS Safety Report 7825987-6 (Version None)
Quarter: 2011Q4

REPORT INFORMATION
  Report Type: 
  Country: None (occurrence: None)
  Receive Date: 20111019
  Receipt Date: 20111014
  Transmission Date: 20120403
  Serious: Yes (Death)
  Sender: FDA-Public Use
  Company Number: GB-ROCHE-1004829

PATIENT

DRUGS (3)
  1. FENTANYL [Concomitant]
  2. METOCLOPRAMIDE [Concomitant]
  3. LUCENTIS [Suspect]
     Indication: PRODUCT USED FOR UNKNOWN INDICATION
     Route: 050

REACTIONS (2)
  - DRUG INEFFECTIVE [None]
  - CARDIOMYOPATHY [None]
